FAERS Safety Report 26126102 (Version 1)
Quarter: 2025Q4

REPORT INFORMATION
  Report Type: Spontaneous
  Country: US (occurrence: None)
  Receive Date: 20251205
  Receipt Date: 20251205
  Transmission Date: 20260118
  Serious: No
  Sender: FDA-CTU
  Company Number: None

PATIENT
  Sex: Male

DRUGS (1)
  1. COSENTYX [Suspect]
     Active Substance: SECUKINUMAB
     Indication: Ankylosing spondylitis
     Dosage: 300 MG EVERY 4 WEEKS SUBCUTANEOUS?
     Route: 058
     Dates: start: 20240912

REACTIONS (3)
  - Wrong technique in product usage process [None]
  - Accidental exposure to product [None]
  - Drug dose omission by device [None]
